FAERS Safety Report 17639160 (Version 2)
Quarter: 2020Q2

REPORT INFORMATION
  Report Type: Report from Study
  Country: CA (occurrence: CA)
  Receive Date: 20200407
  Receipt Date: 20200415
  Transmission Date: 20200713
  Serious: Yes (Other)
  Sender: FDA-Public Use
  Company Number: CA-JNJFOC-20200339197

PATIENT
  Age: 9 Year
  Sex: Female

DRUGS (1)
  1. REMICADE [Suspect]
     Active Substance: INFLIXIMAB
     Indication: COLITIS ULCERATIVE
     Dosage: ON 25-MAR-2020, PATIENT RECEIVED 8TH INFUSION OF INFLIXIMAB 200 MG.
     Route: 042
     Dates: start: 20191010

REACTIONS (3)
  - General physical health deterioration [Unknown]
  - Gastrointestinal inflammation [Unknown]
  - Haematochezia [Unknown]

NARRATIVE: CASE EVENT DATE: 20200324
